FAERS Safety Report 23989954 (Version 1)
Quarter: 2024Q2

REPORT INFORMATION
  Report Type: Spontaneous
  Country: CN (occurrence: CN)
  Receive Date: 20240619
  Receipt Date: 20240619
  Transmission Date: 20240716
  Serious: Yes (Life-Threatening)
  Sender: FDA-Public Use
  Company Number: CN-PFIZER INC-PV202400078894

PATIENT
  Age: 51 Year
  Sex: Female

DRUGS (11)
  1. EPIRUBICIN [Suspect]
     Active Substance: EPIRUBICIN
     Indication: Neoplasm
     Dosage: 100 MG, 1X/DAY (D1)
     Route: 041
     Dates: start: 20240508, end: 20240508
  2. EPIRUBICIN [Suspect]
     Active Substance: EPIRUBICIN
     Indication: Diffuse large B-cell lymphoma
  3. DECITABINE [Suspect]
     Active Substance: DECITABINE
     Indication: Neoplasm
     Dosage: 16.000 MG, FOUR TIMES EVERY SEVEN  DAYS (D1-D2 AND D5-D6)
     Route: 041
     Dates: start: 20240508, end: 20240513
  4. DECITABINE [Suspect]
     Active Substance: DECITABINE
     Indication: Diffuse large B-cell lymphoma
  5. CYCLOPHOSPHAMIDE [Suspect]
     Active Substance: CYCLOPHOSPHAMIDE
     Indication: Neoplasm
     Dosage: 1.200 G, 1X/DAY (D1)
     Route: 041
     Dates: start: 20240508, end: 20240508
  6. CYCLOPHOSPHAMIDE [Suspect]
     Active Substance: CYCLOPHOSPHAMIDE
     Indication: Diffuse large B-cell lymphoma
  7. VINDESINE SULFATE [Suspect]
     Active Substance: VINDESINE SULFATE
     Indication: Neoplasm
     Dosage: 3.000 MG, 1X/DAY (D1)
     Route: 041
     Dates: start: 20240508, end: 20240508
  8. VINDESINE SULFATE [Suspect]
     Active Substance: VINDESINE SULFATE
     Indication: Diffuse large B-cell lymphoma
  9. ZUBERITAMAB [Suspect]
     Active Substance: ZUBERITAMAB
     Indication: Neoplasm
     Dosage: 600.000 MG, 1X/DAY (D0)
     Route: 041
     Dates: start: 20240507, end: 20240507
  10. ZUBERITAMAB [Suspect]
     Active Substance: ZUBERITAMAB
     Indication: Diffuse large B-cell lymphoma
  11. PREDNISONE [Concomitant]
     Active Substance: PREDNISONE
     Indication: Neoplasm
     Dosage: 50.000 MG, 2X/DAY
     Route: 048
     Dates: start: 20240510, end: 20240513

REACTIONS (3)
  - White blood cell count decreased [Recovering/Resolving]
  - Neutrophil count decreased [Recovering/Resolving]
  - Myelosuppression [Recovering/Resolving]

NARRATIVE: CASE EVENT DATE: 20240523
